FAERS Safety Report 11248861 (Version 1)
Quarter: 2015Q2

REPORT INFORMATION
  Report Type: Spontaneous
  Country: US (occurrence: None)
  Receive Date: 20150630
  Receipt Date: 20150630
  Transmission Date: 20150821
  Serious: No
  Sender: FDA-Public Use
  Company Number: GR 15-019

PATIENT
  Age: 54 Year
  Sex: Female
  Weight: 70.31 kg

DRUGS (12)
  1. STANDARDIZED TIMOTHY GRASS [Suspect]
     Active Substance: PHLEUM PRATENSE POLLEN
     Indication: RHINITIS ALLERGIC
     Dosage: 0.3 ML 1 X EACH; 057?
     Dates: start: 20150610
  2. ALLEGRA [Concomitant]
     Active Substance: FEXOFENADINE HYDROCHLORIDE
  3. RED MAPLE POLLEN [Suspect]
     Active Substance: ACER RUBRUM POLLEN
     Indication: RHINITIS ALLERGIC
     Dosage: 0.3 ML 1 X EACH; 057?
     Dates: start: 20150610
  4. MUGWORT SAGE POLLEN [Suspect]
     Active Substance: ARTEMISIA VULGARIS POLLEN
     Indication: RHINITIS ALLERGIC
     Dosage: 0.3 ML 1 X EACH; 057
     Dates: start: 20150610
  5. STANDARDIZED MITE DERMATOPHAGOIDES FARINAE [Suspect]
     Active Substance: DERMATOPHAGOIDES FARINAE
     Indication: RHINITIS ALLERGIC
     Dosage: 0.3 ML 1 X EACH; 057
     Dates: start: 20150610
  6. AMERICAN ELM POLLEN [Suspect]
     Active Substance: ULMUS AMERICANA POLLEN
     Indication: RHINITIS ALLERGIC
     Dosage: 0.3 ML 1 X EACH; 057?
     Dates: start: 20150610
  7. ALLERGENIC EXTRACTS STANDARDIZED MITE (DERMATOPHAGOIDES PTERONYSSINUS) [Suspect]
     Active Substance: DERMATOPHAGOIDES PTERONYSSINUS
     Indication: RHINITIS ALLERGIC
     Dosage: 0.3 ML 1 X EACH; 057
     Dates: start: 20150610
  8. GS EASTERN 6 TREE MIX, 10ML BEECH, AMERICAN (FAGUS GRANDIFOLIA) COTTONWOOD, EASTERN (POPULUS DELTOIDS) OAK, RED (QUERCUS RUBRA0 BIRCH, RED/RIVER (BETULA NIGRA) HICKORY, SHAGBARK (CARYA OVATA) ASH,WHITE (FRAXINUS AMERICANA ) [Suspect]
     Active Substance: BETULA NIGRA POLLEN\BETULA PAPYRIFERA POLLEN\BETULA PENDULA POLLEN\FAGUS GRANDIFOLIA POLLEN\FRAXINUS AMERICANA POLLEN\JUGLANS NIGRA POLLEN\POPULUS DELTOIDES POLLEN\ULMUS AMERICANA POLLEN
     Indication: RHINITIS ALLERGIC
     Dosage: 0.3 ML 1 X EACH; 057?
     Dates: start: 20150610
  9. STANDARDIZED CAT HAIR [Suspect]
     Active Substance: FELIS CATUS HAIR
     Indication: RHINITIS ALLERGIC
     Dosage: 0.3 ML 1 X EACH; 057
     Dates: start: 20150610
  10. STANDARDIZED SHORT RAGWEED POLLEN [Suspect]
     Active Substance: AMBROSIA ARTEMISIIFOLIA POLLEN
     Indication: RHINITIS ALLERGIC
     Dosage: 0.3 ML 1 X EACH; 057?
     Dates: start: 20150610
  11. DOG EPITHELIUM [Suspect]
     Active Substance: CANIS LUPUS FAMILIARIS SKIN
     Indication: RHINITIS ALLERGIC
     Dosage: 0.3 ML 1 X EACH; 057
     Dates: start: 20150610
  12. ENGLISH PLANTAIN POLLEN [Suspect]
     Active Substance: PLANTAGO LANCEOLATA POLLEN
     Indication: RHINITIS ALLERGIC
     Dosage: 0.3 ML 1 X EACH; 057
     Dates: start: 20150610

REACTIONS (1)
  - Seizure [None]

NARRATIVE: CASE EVENT DATE: 20150610
